FAERS Safety Report 7830832-9 (Version None)
Quarter: 2011Q4

REPORT INFORMATION
  Report Type: 
  Country: None (occurrence: None)
  Receive Date: 20111021
  Receipt Date: 20111017
  Transmission Date: 20120403
  Serious: Yes (Other)
  Sender: FDA-Public Use
  Company Number: DE-GLAXOSMITHKLINE-D0073040A

PATIENT
  Age: 73 Year
  Sex: Male

DRUGS (1)
  1. ARIXTRA [Suspect]
     Dosage: 1.5MG PER DAY
     Route: 058
     Dates: start: 20110406, end: 20110428

REACTIONS (5)
  - BRONCHOSPASM [None]
  - DYSPNOEA [None]
  - SWELLING [None]
  - DERMATITIS ALLERGIC [None]
  - PRURITUS [None]
